FAERS Safety Report 7362164-X (Version None)
Quarter: 2011Q1

REPORT INFORMATION
  Report Type: 
  Country: None (occurrence: None)
  Receive Date: 20110309
  Receipt Date: 20110228
  Transmission Date: 20110831
  Serious: Yes (Disabling)
  Sender: FDA-Public Use
  Company Number: OSCN-NO-1102L-0090

PATIENT
  Age: 49 Year
  Sex: Male

DRUGS (2)
  1. OMNISCAN [Suspect]
     Indication: PARATHYROID TUMOUR BENIGN
     Dosage: 15 ML, SINGLE DOSE, I.V.
     Route: 042
     Dates: start: 20040101, end: 20040101
  2. MAGNEVIST [Concomitant]

REACTIONS (1)
  - NEPHROGENIC SYSTEMIC FIBROSIS [None]
